FAERS Safety Report 22218021 (Version 1)
Quarter: 2023Q2

REPORT INFORMATION
  Report Type: Spontaneous
  Country: SA (occurrence: None)
  Receive Date: 20230417
  Receipt Date: 20230417
  Transmission Date: 20230722
  Serious: Yes (Other)
  Sender: FDA-Public Use
  Company Number: SA-MICRO LABS LIMITED-ML2023-02083

PATIENT
  Age: 82 Year
  Sex: Male

DRUGS (1)
  1. DORZOLAMIDE\TIMOLOL [Suspect]
     Active Substance: DORZOLAMIDE\TIMOLOL
     Indication: Product used for unknown indication

REACTIONS (2)
  - Asthma [Unknown]
  - Product prescribing error [Unknown]
